FAERS Safety Report 21512832 (Version 1)
Quarter: 2022Q4

REPORT INFORMATION
  Report Type: Spontaneous
  Country: CN (occurrence: CN)
  Receive Date: 20221027
  Receipt Date: 20221027
  Transmission Date: 20230113
  Serious: Yes (Death, Hospitalization, Other)
  Sender: FDA-Public Use
  Company Number: CN-ASTELLAS-2022US038041

PATIENT
  Sex: Female

DRUGS (1)
  1. TACROLIMUS [Suspect]
     Active Substance: TACROLIMUS
     Indication: Prophylaxis against graft versus host disease
     Dosage: UNK UNK, UNKNOWN FREQ.
     Route: 065
     Dates: start: 202008

REACTIONS (6)
  - Thrombotic microangiopathy [Fatal]
  - Sepsis [Fatal]
  - Klebsiella infection [Unknown]
  - Cytomegalovirus infection [Unknown]
  - BK virus infection [Unknown]
  - Escherichia infection [Unknown]

NARRATIVE: CASE EVENT DATE: 20200101
